FAERS Safety Report 15886119 (Version 7)
Quarter: 2019Q1

REPORT INFORMATION
  Report Type: Spontaneous
  Country: IT (occurrence: IT)
  Receive Date: 20190129
  Receipt Date: 20190217
  Transmission Date: 20190417
  Serious: Yes (Life-Threatening, Hospitalization, Other)
  Sender: FDA-Public Use
  Company Number: PHHY2019IT014982

PATIENT
  Age: 70 Year
  Sex: Female

DRUGS (7)
  1. ENDOXAN [Suspect]
     Active Substance: CYCLOPHOSPHAMIDE
     Indication: NON-HODGKIN^S LYMPHOMA
     Dosage: 750 MG/M2, UNK
     Route: 065
  2. VINCRISTINE SULFATE. [Suspect]
     Active Substance: VINCRISTINE SULFATE
     Indication: NON-HODGKIN^S LYMPHOMA
     Dosage: 1.5 MG/M2, UNK
     Route: 065
  3. DOXORUBICIN HYDROCHLORIDE. [Suspect]
     Active Substance: DOXORUBICIN HYDROCHLORIDE
     Indication: NON-HODGKIN^S LYMPHOMA
     Dosage: 500 MG/M2, UNK
     Route: 065
  4. DOBUTAMINE [Concomitant]
     Active Substance: DOBUTAMINE\DOBUTAMINE HYDROCHLORIDE
     Indication: CARDIAC PHARMACOLOGIC STRESS TEST
     Dosage: LOW-DOSE (UP TO 20 UG/KG/MIN)
     Route: 065
  5. IMATINIB. [Suspect]
     Active Substance: IMATINIB MESYLATE
     Indication: SYSTEMIC SCLERODERMA
  6. PREDNISONE. [Suspect]
     Active Substance: PREDNISONE
     Indication: NON-HODGKIN^S LYMPHOMA
     Dosage: 100 MG, UNK
     Route: 048
  7. IMATINIB. [Suspect]
     Active Substance: IMATINIB MESYLATE
     Indication: CHRONIC MYELOID LEUKAEMIA
     Dosage: 600 MG, QD
     Route: 048

REACTIONS (12)
  - Bundle branch block left [Recovering/Resolving]
  - Cardiomyopathy [Recovering/Resolving]
  - Mitral valve incompetence [Recovered/Resolved]
  - Systolic dysfunction [Recovering/Resolving]
  - Acute pulmonary oedema [Unknown]
  - Cardiotoxicity [Recovering/Resolving]
  - Product use in unapproved indication [Unknown]
  - Aortic stenosis [Recovered/Resolved]
  - Left ventricular dysfunction [Recovered/Resolved]
  - Pulmonary arterial pressure increased [Recovered/Resolved]
  - Dyspnoea [Recovered/Resolved]
  - Cardiac failure congestive [Recovered/Resolved]
